FAERS Safety Report 6021946-7 (Version None)
Quarter: 2008Q4

REPORT INFORMATION
  Report Type: 
  Country: None (occurrence: None)
  Receive Date: 20081229
  Receipt Date: 20081218
  Transmission Date: 20090506
  Serious: Yes (Hospitalization)
  Sender: FDA-Public Use
  Company Number: DE-ROCHE-501023

PATIENT
  Sex: Male
  Weight: 91 kg

DRUGS (20)
  1. RIBAVIRIN [Suspect]
     Route: 048
     Dates: start: 20061017
  2. RIBAVIRIN [Suspect]
     Route: 048
     Dates: end: 20080212
  3. PEG-INTERFERON ALFA 2A (RO 25-8310) [Suspect]
     Route: 058
     Dates: start: 20061017, end: 20080205
  4. PK-MERZ [Suspect]
     Route: 048
     Dates: start: 20061017, end: 20080212
  5. LEVOTHYROXINE SODIUM [Concomitant]
     Dates: start: 20040101
  6. LEVOTHYROXINE SODIUM [Concomitant]
     Dosage: IN THE MORNING.
  7. BISOPROLOL FUMARATE [Concomitant]
     Dates: start: 20040101
  8. SPIRONOLACTONE [Concomitant]
     Dates: start: 20050101
  9. HYDROCHLOROTHIAZIDE [Concomitant]
     Dates: start: 20050101
  10. GLYBURIDE [Concomitant]
     Dates: start: 20060101
  11. LACTULOSE [Concomitant]
     Dosage: IN THE MORNING
  12. METOPROLOL SUCCINATE [Concomitant]
     Dosage: IN THE MORNING
  13. HYDROCHLOROTHIAZIDE [Concomitant]
     Dosage: STRENGTH: 25 I, FREQUENCY: IN THE MORNING
  14. ALDACTONE [Concomitant]
     Dosage: STRENGTH: 50 I, FREQUENCY: IN THE MORNING
     Route: 049
  15. ANTIDEPRESSANTS [Concomitant]
     Dosage: DOSAGE:3XDAILY
  16. ACETYLCYSTEINE [Concomitant]
     Dosage: DRUG:ACETYLCYSTEIN 200
  17. AMITRIPTYLINE HCL [Concomitant]
     Dosage: DRUG: NUTRILIN 25
  18. EPOETIN ALFA [Concomitant]
  19. DEPREX [Concomitant]
  20. LEVOTHYROXINE SODIUM [Concomitant]
     Dosage: IN THE MORNING

REACTIONS (5)
  - ABDOMINAL WALL ABSCESS [None]
  - ANAEMIA [None]
  - PNEUMONIA [None]
  - SYNCOPE [None]
  - THROMBOCYTOPENIA [None]
